FAERS Safety Report 7083603-8 (Version None)
Quarter: 2010Q4

REPORT INFORMATION
  Report Type: 
  Country: None (occurrence: None)
  Receive Date: 20101027
  Receipt Date: 20101021
  Transmission Date: 20110411
  Serious: Yes (Other)
  Sender: FDA-Public Use
  Company Number: 016335

PATIENT
  Sex: Male

DRUGS (11)
  1. XYZAL [Suspect]
     Dosage: (XYZALL 5 MG ORAL)
     Route: 048
     Dates: start: 20100412
  2. ARIXTRA [Suspect]
     Dosage: (ORAL)
     Route: 048
  3. IPRATROPIUM BROMIDE [Suspect]
     Dosage: (ORAL)
     Route: 048
  4. SULFARLEM /00558302/ (SULFARLEM) [Suspect]
     Dosage: (ORAL)
     Route: 048
  5. TAHOR (TAHOR) [Suspect]
     Dosage: (ORAL)
     Route: 048
  6. FENOFIBRATE [Suspect]
     Dosage: (ORAL)
     Route: 048
  7. LASIX [Suspect]
     Dosage: (ORAL)
     Route: 048
  8. TRIATEC /00885601/ (TRIATEC) (NOT SPECIFIED) [Suspect]
     Dosage: (ORAL)
     Route: 048
  9. IMOVANE (IMOVANE) (NOT SPECIFIED) [Suspect]
     Dosage: (ORAL)
     Route: 048
  10. VERAPAMIL [Suspect]
     Dosage: (ORAL)
     Route: 048
  11. KARDEGIC /00002703/ (KARDEGIC) (NOT SPECIFIED) [Suspect]
     Dosage: (ORAL)
     Route: 048

REACTIONS (1)
  - MACULAR OEDEMA [None]
